FAERS Safety Report 16098377 (Version 1)
Quarter: 2019Q1

REPORT INFORMATION
  Report Type: Other
  Country: GB (occurrence: GB)
  Receive Date: 20190321
  Receipt Date: 20190321
  Transmission Date: 20190418
  Serious: Yes (Hospitalization)
  Sender: FDA-Public Use
  Company Number: GB-STRIDES ARCOLAB LIMITED-2019SP002338

PATIENT
  Sex: Male

DRUGS (2)
  1. IBUPROFEN. [Suspect]
     Active Substance: IBUPROFEN
     Indication: TOOTHACHE
  2. IBUPROFEN. [Suspect]
     Active Substance: IBUPROFEN
     Indication: DENTAL CARE
     Dosage: UNK, TABLET
     Route: 065

REACTIONS (2)
  - Gastrointestinal haemorrhage [Unknown]
  - Circulatory collapse [Unknown]
